FAERS Safety Report 8561610-3 (Version None)
Quarter: 2012Q3

REPORT INFORMATION
  Report Type: 
  Country: None (occurrence: None)
  Receive Date: 20120802
  Receipt Date: 20120712
  Transmission Date: 20120928
  Serious: No
  Sender: FDA-Public Use
  Company Number: US-ASTRAZENECA-2012SE48941

PATIENT
  Age: 48 Year
  Sex: Female

DRUGS (1)
  1. NEXIUM [Suspect]
     Route: 048

REACTIONS (4)
  - DYSPHONIA [None]
  - INCREASED UPPER AIRWAY SECRETION [None]
  - COUGH [None]
  - DRUG DOSE OMISSION [None]
